FAERS Safety Report 7026787-X (Version None)
Quarter: 2010Q3

REPORT INFORMATION
  Report Type: 
  Country: None (occurrence: None)
  Receive Date: 20100929
  Receipt Date: 20100914
  Transmission Date: 20110219
  Serious: Yes (Death)
  Sender: FDA-Public Use
  Company Number: 2010P1001494

PATIENT
  Age: 60 Year
  Sex: Female

DRUGS (10)
  1. FENTANYL [Suspect]
     Dosage: IV
     Route: 042
  2. PROPOFOL [Suspect]
  3. PHENYLEPHRINE (NO PREF. NAME) [Suspect]
  4. SODIUM CHLORIDE [Suspect]
  5. CALCIUM CHLORIDE [Suspect]
  6. EPHEDRINE (NO PREF. NAME) [Suspect]
  7. PROTHROMPLEX S-TIM (NO PREF. NAME) [Suspect]
  8. ESOMEPRAZOLE (NO PREF. NAME) [Suspect]
  9. TERLIPRESSIN (NO PREF. NAME) [Suspect]
  10. BRICANYL [Suspect]

REACTIONS (5)
  - BLISTER [None]
  - INCORRECT ROUTE OF DRUG ADMINISTRATION [None]
  - MEDICATION ERROR [None]
  - NECROSIS [None]
  - RASH ERYTHEMATOUS [None]
